FAERS Safety Report 5533933-3 (Version None)
Quarter: 2007Q4

REPORT INFORMATION
  Report Type: 
  Country: None (occurrence: None)
  Receive Date: 20071129
  Receipt Date: 20071113
  Transmission Date: 20080405
  Serious: Yes (Other)
  Sender: FDA-Public Use
  Company Number: 2007JP005209

PATIENT
  Age: 10 Year
  Sex: Female

DRUGS (3)
  1. PROGRAF [Suspect]
     Indication: RENAL TRANSPLANT
  2. MYCOPHENOLATE MOFETIL [Concomitant]
  3. METHYLPREDNISOLONE [Concomitant]

REACTIONS (3)
  - DISEASE RECURRENCE [None]
  - FOCAL SEGMENTAL GLOMERULOSCLEROSIS [None]
  - KIDNEY RUPTURE [None]
